FAERS Safety Report 22163566 (Version 2)
Quarter: 2023Q2

REPORT INFORMATION
  Report Type: Spontaneous
  Country: US (occurrence: US)
  Receive Date: 20230401
  Receipt Date: 20230403
  Transmission Date: 20230721
  Serious: No
  Sender: FDA-Public Use
  Company Number: US-002147023-NVSC2023US075874

PATIENT
  Sex: Female

DRUGS (1)
  1. VOTRIENT [Suspect]
     Active Substance: PAZOPANIB HYDROCHLORIDE
     Indication: Phakomatosis
     Dosage: 400 MG, QD
     Route: 048
     Dates: start: 20230308

REACTIONS (3)
  - Hair colour changes [Unknown]
  - Vitiligo [Unknown]
  - Off label use [Unknown]
